FAERS Safety Report 22181992 (Version 1)
Quarter: 2023Q2

REPORT INFORMATION
  Report Type: Spontaneous
  Country: US (occurrence: None)
  Receive Date: 20230405
  Receipt Date: 20230405
  Transmission Date: 20230722
  Serious: Yes (Hospitalization)
  Sender: FDA-Public Use
  Company Number: None

PATIENT
  Age: 29 Year

DRUGS (2)
  1. TOBRAMYCIN [Suspect]
     Active Substance: TOBRAMYCIN
     Indication: Cystic fibrosis
     Dosage: 300MG/5ML INHALATION? ??TOBRAMYCIN 300MG/5ML INH SOL 5ML: DIRECTIONS: INHALE 5 ML BY NEBULIZATION BI
     Route: 055
     Dates: start: 20190827
  2. CREON [Suspect]
     Active Substance: PANCRELIPASE AMYLASE\PANCRELIPASE LIPASE\PANCRELIPASE PROTEASE
     Indication: Cystic fibrosis
     Dosage: 24,000U ORAL??CREON 24,000U CAPSULES: DIRECTIONS: TK 6 CS PO WITH MEALS AND 4 CS PO WITH SNACKS 3 ME
     Route: 048
     Dates: start: 20191024

REACTIONS (3)
  - Pulmonary function test decreased [None]
  - Forced expiratory volume decreased [None]
  - Infective pulmonary exacerbation of cystic fibrosis [None]

NARRATIVE: CASE EVENT DATE: 20230306
